FAERS Safety Report 20297892 (Version 2)
Quarter: 2022Q1

REPORT INFORMATION
  Report Type: Spontaneous
  Country: FR (occurrence: FR)
  Receive Date: 20220105
  Receipt Date: 20220220
  Transmission Date: 20220423
  Serious: Yes (Hospitalization)
  Sender: FDA-Public Use
  Company Number: None

PATIENT
  Age: 56 Year
  Sex: Male
  Weight: 129 kg

DRUGS (11)
  1. AMOXICILLIN [Suspect]
     Active Substance: AMOXICILLIN
     Indication: Antibiotic prophylaxis
     Dosage: UNK
     Route: 048
     Dates: start: 20211128, end: 20211130
  2. SPIRONOLACTONE [Suspect]
     Active Substance: SPIRONOLACTONE
     Indication: Hypertension
     Dosage: 75 MG, QD (75 MG LE MATIN)
     Route: 048
     Dates: end: 20211207
  3. FUROSEMIDE [Suspect]
     Active Substance: FUROSEMIDE
     Indication: Cardiac failure
     Dosage: 330 MG, QD (250MG LE MATIN (1/2 COMPRIM? DE 500MG) ET 80 MG ? MIDI (2 COMPRIM?S DE 40))
     Route: 048
     Dates: end: 20211207
  4. CANDESARTAN CILEXETIL [Suspect]
     Active Substance: CANDESARTAN CILEXETIL
     Indication: Hypertension
     Dosage: 4 MG, QD
     Route: 048
     Dates: end: 20211207
  5. DAPAGLIFLOZIN [Suspect]
     Active Substance: DAPAGLIFLOZIN
     Indication: Cardiac failure
     Dosage: UNK, QD (CONCENTRATION: 10 MG, COMPRIM? PELLICUL? )
     Route: 048
     Dates: start: 20211014, end: 20211207
  6. BISOPROLOL [Concomitant]
     Active Substance: BISOPROLOL
     Indication: Cardiac failure
     Dosage: 5 MG, QD (2,5 MG LE MATIN ET 2,5 MG LE SOIR)
     Route: 048
  7. LEVOTHYROXINE [Concomitant]
     Active Substance: LEVOTHYROXINE
     Indication: Hypothyroidism
     Dosage: UNK, QD (50 MICROGRAMMES, COMPRIM? S?CABLE)
     Route: 048
  8. ALFUZOSIN [Concomitant]
     Active Substance: ALFUZOSIN
     Indication: Benign prostatic hyperplasia
     Dosage: UNK, QD (10MG LE SOIR) (CONCENTRATION: 10 MG, COMPRIM? ? LIB?RATION PROLONG?E)
     Route: 048
  9. COUMADIN [Concomitant]
     Active Substance: WARFARIN SODIUM
     Indication: Anticoagulant therapy
     Dosage: UNK, QD (CONCENTRATION: 5 MG, COMPRIM? S?CABLE )
     Route: 048
  10. REPAGLINIDE [Concomitant]
     Active Substance: REPAGLINIDE
     Indication: Type 2 diabetes mellitus
     Dosage: 12 MG, QD (4MG MATIN, MIDI ET SOIR )
     Route: 048
  11. POTASSIUM CHLORIDE [Concomitant]
     Active Substance: POTASSIUM CHLORIDE
     Indication: Hypokalaemia
     Dosage: 1200 MG, QD
     Route: 048

REACTIONS (1)
  - Acute kidney injury [Recovering/Resolving]

NARRATIVE: CASE EVENT DATE: 20211206
